FAERS Safety Report 5363083-0 (Version None)
Quarter: 2007Q2

REPORT INFORMATION
  Report Type: 
  Country: None (occurrence: None)
  Receive Date: 20070615
  Receipt Date: 20070601
  Transmission Date: 20071010
  Serious: Yes (Death)
  Sender: FDA-Public Use
  Company Number: 2005JP000046

PATIENT
  Age: 8 Month
  Sex: Male

DRUGS (2)
  1. PROGRAF [Suspect]
     Indication: SMALL INTESTINE TRANSPLANT
     Dates: start: 20010615
  2. STEROID [Concomitant]

REACTIONS (1)
  - SEPTIC SHOCK [None]
